FAERS Safety Report 18605014 (Version 1)
Quarter: 2020Q4

REPORT INFORMATION
  Report Type: Spontaneous
  Country: US (occurrence: US)
  Receive Date: 20201211
  Receipt Date: 20201211
  Transmission Date: 20210114
  Serious: No
  Sender: FDA-Public Use
  Company Number: None

PATIENT
  Age: 77 Year
  Sex: Female
  Weight: 69.75 kg

DRUGS (4)
  1. OLMESARTAN MEDOXOMIL. [Concomitant]
     Active Substance: OLMESARTAN MEDOXOMIL
  2. VITAMIN D [Concomitant]
     Active Substance: VITAMIN D NOS
  3. FASLODEX [Concomitant]
     Active Substance: FULVESTRANT
  4. IBRANCE [Suspect]
     Active Substance: PALBOCICLIB
     Indication: BREAST CANCER FEMALE
     Route: 048
     Dates: start: 20200512, end: 20201211

REACTIONS (1)
  - Disease progression [None]

NARRATIVE: CASE EVENT DATE: 20201211
